FAERS Safety Report 4577626-8 (Version None)
Quarter: 2005Q1

REPORT INFORMATION
  Report Type: 
  Country: None (occurrence: None)
  Receive Date: 20050208
  Receipt Date: 20050121
  Transmission Date: 20050727
  Serious: Yes (Other)
  Sender: FDA-Public Use
  Company Number: CEL-2005-00137-SLO

PATIENT
  Sex: Male

DRUGS (1)
  1. EQUASYM (METHYLPHENIDATE HYDROCHLORIDE) [Suspect]

REACTIONS (1)
  - CARDIOMEGALY [None]
